FAERS Safety Report 6145273-2 (Version None)
Quarter: 2009Q2

REPORT INFORMATION
  Report Type: 
  Country: None (occurrence: None)
  Receive Date: 20090406
  Receipt Date: 20090406
  Transmission Date: 20091009
  Serious: Yes (Hospitalization)
  Sender: FDA-Public Use
  Company Number: PHHO2007DK07162

PATIENT
  Sex: Female
  Weight: 46.7 kg

DRUGS (4)
  1. CGS 20267 T30748+ [Suspect]
     Dosage: 2.5 MG, QD
     Route: 048
  2. TAMOXIFEN CITRATE [Suspect]
     Dosage: 20 MG, QD
     Dates: start: 20020215
  3. BONIVA [Concomitant]
  4. OXYCONTIN [Concomitant]

REACTIONS (3)
  - FALL [None]
  - FEMUR FRACTURE [None]
  - OSTEOSYNTHESIS [None]
